FAERS Safety Report 4922661-0 (Version None)
Quarter: 2006Q1

REPORT INFORMATION
  Report Type: 
  Country: None (occurrence: None)
  Receive Date: 20060113
  Receipt Date: 20050920
  Transmission Date: 20060701
  Serious: No
  Sender: FDA-Public Use
  Company Number: 2005SP003120

PATIENT
  Age: 50 Year
  Sex: Female
  Weight: 68.0396 kg

DRUGS (4)
  1. LUNESTA [Suspect]
     Indication: INSOMNIA
     Dosage: 3 MG PRN ORAL
     Route: 048
     Dates: start: 20050901
  2. ZOLOFT [Concomitant]
  3. SONATA [Concomitant]
  4. ESTROGENS CONJUGATED [Concomitant]

REACTIONS (2)
  - DRY EYE [None]
  - DYSGEUSIA [None]
